FAERS Safety Report 7565867-7 (Version None)
Quarter: 2011Q2

REPORT INFORMATION
  Report Type: 
  Country: None (occurrence: None)
  Receive Date: 20110617
  Receipt Date: 20100419
  Transmission Date: 20111010
  Serious: Yes (Hospitalization, Other)
  Sender: FDA-Public Use
  Company Number: 2010-1332

PATIENT
  Age: 73 Year
  Sex: Male

DRUGS (7)
  1. HALOPERIDOL [Concomitant]
  2. APOMORPHINE (APO-GO) (APOMORPHINE) (APOMORPHINE HYDROCHLORIDE) [Suspect]
     Indication: RESTLESS LEGS SYNDROME
     Dosage: 30 MG (30 MG,1 IN 1 D),SUBCUTANEOUS
     Route: 058
     Dates: start: 20100301, end: 20100326
  3. METFORMIN HCL [Concomitant]
  4. CLONAZEPAM [Concomitant]
  5. GLICLAZIDE (GLICLAZIDE) [Concomitant]
  6. SIMVASTATIN [Concomitant]
  7. LOPERAMIDE [Concomitant]

REACTIONS (1)
  - INFUSION SITE NECROSIS [None]
